FAERS Safety Report 25657869 (Version 1)
Quarter: 2025Q3

REPORT INFORMATION
  Report Type: Spontaneous
  Country: IN (occurrence: IN)
  Receive Date: 20250808
  Receipt Date: 20250808
  Transmission Date: 20251021
  Serious: Yes (Other)
  Sender: SHILPA MEDICARE
  Company Number: IN-KOANAAP-SML-IN-2025-00377

PATIENT
  Age: 30 Year
  Sex: Male

DRUGS (6)
  1. GEMCITABINE [Suspect]
     Active Substance: GEMCITABINE
     Indication: Gallbladder cancer
     Dosage: MODIFIED GEMCITABINE AND OXALIPLATIN (MGEMOX) CHEMOTHERAPY REGIMEN WITH GEMCITABINE 900 MG/M2 AND OX
     Route: 042
  2. CAPECITABINE [Suspect]
     Active Substance: CAPECITABINE
     Indication: Gallbladder cancer
     Route: 048
  3. CAPECITABINE [Suspect]
     Active Substance: CAPECITABINE
     Route: 048
  4. CAPECITABINE [Suspect]
     Active Substance: CAPECITABINE
  5. CAPECITABINE [Suspect]
     Active Substance: CAPECITABINE
  6. OXALIPLATIN [Suspect]
     Active Substance: OXALIPLATIN
     Indication: Gallbladder cancer
     Dosage: MODIFIED GEMCITABINE AND OXALIPLATIN (MGEMOX) CHEMOTHERAPY REGIMEN WITH GEMCITABINE 900 MG/M2 AND OX
     Route: 042

REACTIONS (7)
  - Therapy partial responder [Unknown]
  - Haematemesis [Recovered/Resolved]
  - Melaena [Recovered/Resolved]
  - Decreased appetite [Recovered/Resolved]
  - Nausea [Recovered/Resolved]
  - Neutropenia [Recovered/Resolved]
  - Thrombocytopenia [Recovered/Resolved]
